FAERS Safety Report 8421278-3 (Version None)
Quarter: 2012Q2

REPORT INFORMATION
  Report Type: 
  Country: None (occurrence: None)
  Receive Date: 20120604
  Receipt Date: 20120604
  Transmission Date: 20120825
  Serious: Yes (Hospitalization)
  Sender: FDA-Public Use
  Company Number: None

PATIENT
  Age: 71 Year
  Sex: Male
  Weight: 84 kg

DRUGS (2)
  1. CARBOPLATIN [Suspect]
     Indication: LUNG CARCINOMA CELL TYPE UNSPECIFIED STAGE IV
     Dosage: 400 MG ONCE IV
     Route: 042
     Dates: start: 20120313
  2. PEMETREXED [Suspect]
     Indication: LUNG CARCINOMA CELL TYPE UNSPECIFIED STAGE IV
     Dosage: 1025 MG ONCE IV
     Route: 042
     Dates: start: 20120313

REACTIONS (5)
  - DECREASED APPETITE [None]
  - WEIGHT DECREASED [None]
  - NAUSEA [None]
  - VOMITING [None]
  - ASTHENIA [None]
